FAERS Safety Report 21006307 (Version 1)
Quarter: 2022Q2

REPORT INFORMATION
  Report Type: Report from Study
  Country: CA (occurrence: CA)
  Receive Date: 20220624
  Receipt Date: 20220624
  Transmission Date: 20220721
  Serious: Yes (Hospitalization)
  Sender: FDA-Public Use
  Company Number: CA-MYLANLABS-2022M1043500

PATIENT
  Age: 18 Year
  Sex: Male

DRUGS (2)
  1. HULIO [Suspect]
     Active Substance: ADALIMUMAB-FKJP
     Indication: Juvenile idiopathic arthritis
     Dosage: 40 MILLIGRAM, QW (14 (DAYS) EVERY OTHER WEEK)
     Route: 058
  2. HULIO [Suspect]
     Active Substance: ADALIMUMAB-FKJP
     Dosage: 40 MILLIGRAM, Q2W (40MG EVERY OTHER WEEK)
     Route: 065

REACTIONS (3)
  - Hospitalisation [Unknown]
  - Pharyngitis streptococcal [Unknown]
  - Product dose omission issue [Unknown]
